FAERS Safety Report 7240835-3 (Version None)
Quarter: 2011Q1

REPORT INFORMATION
  Report Type: 
  Country: None (occurrence: None)
  Receive Date: 20110124
  Receipt Date: 20110114
  Transmission Date: 20110831
  Serious: Yes (Other)
  Sender: FDA-Public Use
  Company Number: CA-JNJFOC-20100506988

PATIENT
  Sex: Female
  Weight: 72 kg

DRUGS (3)
  1. ASA [Concomitant]
  2. REMICADE [Suspect]
     Indication: COLITIS
     Dosage: THERAPY DURATION ^TO PRESENT^
     Route: 042
  3. IMURAN [Concomitant]

REACTIONS (2)
  - RASH [None]
  - PULMONARY EMBOLISM [None]
